FAERS Safety Report 24674588 (Version 2)
Quarter: 2024Q4

REPORT INFORMATION
  Report Type: Report from Study
  Country: US (occurrence: US)
  Receive Date: 20241128
  Receipt Date: 20241129
  Transmission Date: 20250115
  Serious: Yes (Hospitalization, Other)
  Sender: GILEAD
  Company Number: US-GILEAD-2024-0695007

PATIENT
  Sex: Male

DRUGS (21)
  1. AZTREONAM LYSINE [Suspect]
     Active Substance: AZTREONAM LYSINE
     Indication: Respiratory tract malformation
     Dosage: FOR 14 DAYS ON, 14 DAYS OFF ALTERNATING SCHEDULE
     Route: 055
     Dates: start: 20240221
  2. AZTREONAM LYSINE [Suspect]
     Active Substance: AZTREONAM LYSINE
     Indication: Pseudomonas infection
  3. AZTREONAM LYSINE [Suspect]
     Active Substance: AZTREONAM LYSINE
     Indication: Cystic fibrosis
  4. PROPRANOLOL HYDROCHLORIDE [Concomitant]
     Active Substance: PROPRANOLOL HYDROCHLORIDE
     Dosage: 20 MG/5 ML SOLUTION
  5. ASPIRIN [Concomitant]
     Active Substance: ASPIRIN
     Dosage: 81 MG TAB CHEW
  6. METOLAZONE [Concomitant]
     Active Substance: METOLAZONE
     Dosage: 5 MG TABLET
  7. ALBUTEROL SULFATE [Concomitant]
     Active Substance: ALBUTEROL SULFATE
  8. VITAMIN D3 [Concomitant]
     Active Substance: CHOLECALCIFEROL
     Dosage: 10(400)/ML DROPS
  9. SPIRONOLACTONE [Concomitant]
     Active Substance: SPIRONOLACTONE
     Dosage: 25 MG/5 ML ORAL SUSP
  10. BUMETANIDE [Concomitant]
     Active Substance: BUMETANIDE
     Dosage: 1 MG TABLET
  11. CALCIUM [Concomitant]
     Active Substance: CALCIUM
     Dosage: 500(1250) TABLET
  12. ENALAPRIL MALEATE [Concomitant]
     Active Substance: ENALAPRIL MALEATE
     Dosage: 5 MG TABLET
  13. PULMOZYME [Concomitant]
     Active Substance: DORNASE ALFA
     Dosage: 1 MG/ML SOLUTION
  14. IRONUP [Concomitant]
     Dosage: 15MG/0.5ML DROPS
  15. POTASSIUM CHLORIDE [Concomitant]
     Active Substance: POTASSIUM CHLORIDE
  16. CYPROHEPTADINE HYDROCHLORIDE [Concomitant]
     Active Substance: CYPROHEPTADINE HYDROCHLORIDE
     Dosage: 2 MG/5 ML SYRUP
  17. ALBUTEROL SULFATE [Concomitant]
     Active Substance: ALBUTEROL SULFATE
  18. FLUTICASONE PROPIONATE HFA [Concomitant]
     Active Substance: FLUTICASONE PROPIONATE
  19. OMEPRAZOLE [Concomitant]
     Active Substance: OMEPRAZOLE
     Dosage: 20 MG TABLET DR
  20. SODIUM CHLORIDE [Concomitant]
     Active Substance: SODIUM CHLORIDE
     Dosage: 7 % VIAL-NEB
  21. AMOXICILLIN [Concomitant]
     Active Substance: AMOXICILLIN
     Dosage: 500 MG/5 ML

REACTIONS (3)
  - Catheterisation cardiac [Unknown]
  - Surgery [Unknown]
  - Product use issue [Not Recovered/Not Resolved]
